FAERS Safety Report 6788788-6 (Version None)
Quarter: 2010Q2

REPORT INFORMATION
  Report Type: 
  Country: None (occurrence: None)
  Receive Date: 20100623
  Receipt Date: 20080624
  Transmission Date: 20101027
  Serious: No
  Sender: FDA-Public Use
  Company Number: US-PFIZER INC-2008041052

PATIENT
  Sex: Male
  Weight: 79.545 kg

DRUGS (4)
  1. CALAN [Suspect]
     Indication: TACHYCARDIA
     Dosage: 80 MG, 2X/DAY
  2. THYROID TAB [Concomitant]
  3. TESTOSTERONE [Concomitant]
  4. DHEA [Concomitant]

REACTIONS (1)
  - DRUG INEFFECTIVE [None]
